FAERS Safety Report 7289342-2 (Version None)
Quarter: 2011Q1

REPORT INFORMATION
  Report Type: 
  Country: None (occurrence: None)
  Receive Date: 20110211
  Receipt Date: 20110126
  Transmission Date: 20110831
  Serious: Yes (Hospitalization)
  Sender: FDA-Public Use
  Company Number: US-CELGENEUS-163-21880-11013016

PATIENT
  Sex: Female

DRUGS (1)
  1. REVLIMID [Suspect]
     Indication: MULTIPLE MYELOMA
     Route: 048
     Dates: start: 20100101

REACTIONS (4)
  - URINARY TRACT INFECTION BACTERIAL [None]
  - ESCHERICHIA URINARY TRACT INFECTION [None]
  - CARDIOMEGALY [None]
  - PULMONARY OEDEMA [None]
